FAERS Safety Report 23415828 (Version 1)
Quarter: 2024Q1

REPORT INFORMATION
  Report Type: Spontaneous
  Country: US (occurrence: None)
  Receive Date: 20240117
  Receipt Date: 20240117
  Transmission Date: 20240410
  Serious: No
  Sender: FDA-Public Use
  Company Number: None

PATIENT
  Age: 61 Year
  Sex: Male

DRUGS (1)
  1. COSENTYX [Suspect]
     Active Substance: SECUKINUMAB
     Indication: Psoriasis
     Dosage: INJECT 300MG (1 PEN) SUBCUTANEOUSLY AT WEEK 3 AS DIRECTED.
     Route: 058
     Dates: start: 202401

REACTIONS (2)
  - Influenza like illness [None]
  - Dyspnoea [None]
